FAERS Safety Report 4468089-1 (Version None)
Quarter: 2004Q4

REPORT INFORMATION
  Report Type: 
  Country: None (occurrence: None)
  Receive Date: 20041004
  Receipt Date: 20040920
  Transmission Date: 20050328
  Serious: Yes (Hospitalization, Other)
  Sender: FDA-Public Use
  Company Number: 200414041BCC

PATIENT
  Age: 95 Year
  Sex: Female
  Weight: 52.6173 kg

DRUGS (3)
  1. ALEVE [Suspect]
     Indication: HEADACHE
     Dosage: 220 MG, HS, ORAL
     Route: 048
  2. RISPERDAL [Concomitant]
  3. ALBUTEROL [Concomitant]

REACTIONS (15)
  - AORTIC VALVE CALCIFICATION [None]
  - AORTIC VALVE INCOMPETENCE [None]
  - AORTIC VALVE SCLEROSIS [None]
  - BREATH SOUNDS DECREASED [None]
  - CARDIAC VALVE VEGETATION [None]
  - COLITIS [None]
  - CONFUSIONAL STATE [None]
  - DISEASE RECURRENCE [None]
  - HALLUCINATION [None]
  - MITRAL VALVE INCOMPETENCE [None]
  - PITTING OEDEMA [None]
  - PULMONARY VALVE INCOMPETENCE [None]
  - PYELONEPHRITIS [None]
  - TRICUSPID VALVE INCOMPETENCE [None]
  - URINARY TRACT INFECTION [None]
